FAERS Safety Report 6815278-4 (Version None)
Quarter: 2010Q3

REPORT INFORMATION
  Report Type: 
  Country: None (occurrence: None)
  Receive Date: 20100702
  Receipt Date: 20100617
  Transmission Date: 20110219
  Serious: Yes (Other)
  Sender: FDA-Public Use
  Company Number: PHHY2010ES39542

PATIENT
  Sex: Female

DRUGS (2)
  1. LOXIFAN [Suspect]
     Dosage: UNK
  2. IBUPROFEN [Concomitant]

REACTIONS (4)
  - ACTIVITIES OF DAILY LIVING IMPAIRED [None]
  - GENITAL EROSION [None]
  - SEXUAL DYSFUNCTION [None]
  - SKIN LACERATION [None]
